FAERS Safety Report 23736699 (Version 2)
Quarter: 2024Q2

REPORT INFORMATION
  Report Type: Spontaneous
  Country: US (occurrence: US)
  Receive Date: 20240412
  Receipt Date: 20240603
  Transmission Date: 20240716
  Serious: Yes (Other)
  Sender: FDA-Public Use
  Company Number: US-PFIZER INC-202400080206

PATIENT
  Age: 1 Year
  Sex: Male

DRUGS (2)
  1. GENOTROPIN [Suspect]
     Active Substance: SOMATROPIN
     Indication: Growth hormone deficiency
     Dosage: 0.3MG 7 DAYS/WEEK (0.223 MG/KG/WK)
  2. GENOTROPIN [Suspect]
     Active Substance: SOMATROPIN
     Dosage: 0.4 MG 7 DAY/WEEK (0.3 MG/KG/WK)
     Dates: start: 20150903, end: 201512

REACTIONS (4)
  - Cardiovascular disorder [Unknown]
  - Hypertrophic cardiomyopathy [Unknown]
  - Subvalvular aortic stenosis [Unknown]
  - Insulin-like growth factor decreased [Unknown]

NARRATIVE: CASE EVENT DATE: 20150301
